FAERS Safety Report 8392289 (Version 7)
Quarter: 2014Q2

REPORT INFORMATION
  Report Type: Report from Study
  Country: US (occurrence: US)
  Receive Date: 20120206
  Receipt Date: 20140613
  Transmission Date: 20141212
  Serious: Yes (Hospitalization, Other)
  Sender: FDA-Public Use
  Company Number: PHEH2011US07925

PATIENT
  Age: 80 Year
  Sex: Female

DRUGS (14)
  1. GLEEVEC [Suspect]
     Indication: CHRONIC MYELOID LEUKAEMIA
     Dosage: 400 MG, DAILY
     Dates: start: 201110
  2. GLEEVEC [Suspect]
     Dosage: 300 MG
     Dates: start: 20120103
  3. GLEEVEC [Suspect]
     Dosage: 200 MG, DAILY
     Dates: start: 20120117, end: 20120314
  4. GLEEVEC [Suspect]
     Dosage: 200 MG
     Dates: start: 201205
  5. PRILOSEC [Concomitant]
  6. SYNTHROID [Concomitant]
  7. COUMADIN [Concomitant]
     Dosage: 1 DF, EVERY DAY
     Route: 048
     Dates: start: 20120228
  8. JANUVIA [Concomitant]
     Dosage: 2 DF, EVERY DAY
     Route: 048
     Dates: start: 20121106
  9. DIOVAN HCT [Concomitant]
  10. METOPROLOL [Concomitant]
  11. LASIX [Concomitant]
     Dosage: 1 DF, EVERY DAY
     Route: 048
     Dates: start: 20121002
  12. OS-CAL 500 + D [Concomitant]
     Dosage: 1 UKN, EVERY DAY
     Route: 048
  13. PLAVIX [Concomitant]
     Dosage: 1 DF, EVERY DAY
     Route: 048
     Dates: start: 20121002
  14. COREG [Concomitant]
     Dosage: 1 DF, EVERY DAY WITH FOOD
     Route: 048
     Dates: start: 20131206

REACTIONS (6)
  - Cardiac disorder [Not Recovered/Not Resolved]
  - Bradycardia [Unknown]
  - Heart rate increased [Not Recovered/Not Resolved]
  - Pleural effusion [Not Recovered/Not Resolved]
  - Nausea [Unknown]
  - Vomiting [Unknown]
